FAERS Safety Report 18578351 (Version 1)
Quarter: 2020Q4

REPORT INFORMATION
  Report Type: Spontaneous
  Country: US (occurrence: US)
  Receive Date: 20201203
  Receipt Date: 20201203
  Transmission Date: 20210114
  Serious: No
  Sender: FDA-Public Use
  Company Number: None

PATIENT
  Age: 42 Year
  Sex: Female
  Weight: 65.94 kg

DRUGS (1)
  1. BAMLANIVIMAB. [Suspect]
     Active Substance: BAMLANIVIMAB
     Indication: COVID-19
     Route: 041
     Dates: start: 20201116, end: 20201116

REACTIONS (9)
  - Infusion related reaction [None]
  - Burning sensation [None]
  - Dyspnoea [None]
  - Heart rate increased [None]
  - Chest discomfort [None]
  - Nausea [None]
  - Chest pain [None]
  - Cardiac disorder [None]
  - Discomfort [None]

NARRATIVE: CASE EVENT DATE: 20201126
